FAERS Safety Report 9393649 (Version 1)
Quarter: 2013Q3

REPORT INFORMATION
  Report Type: Spontaneous
  Country: IE (occurrence: None)
  Receive Date: 20130705
  Receipt Date: 20130705
  Transmission Date: 20140515
  Serious: Yes (Hospitalization)
  Sender: FDA-Public Use
  Company Number: 2013P1010834

PATIENT
  Age: 72 Year
  Sex: Male

DRUGS (11)
  1. CIPROFLOXACIN [Suspect]
     Indication: LOWER RESPIRATORY TRACT INFECTION
  2. ESOMEPRAZOLE [Concomitant]
  3. ALFACALCIDOL [Concomitant]
  4. PREGABALIN [Concomitant]
  5. ASPIRIN [Concomitant]
  6. ATORVASTATIN [Concomitant]
  7. FOLIC ACID [Concomitant]
  8. SEVELAMER [Concomitant]
  9. CALCIUM ACETATE [Concomitant]
  10. GLICLAZIDE PROLONGED-RELEASE [Concomitant]
  11. DARBEPOETIN ALFA [Concomitant]

REACTIONS (6)
  - Choreoathetosis [None]
  - Restlessness [None]
  - Cardiogenic shock [None]
  - Acute myocardial infarction [None]
  - Sleep disorder [None]
  - Tremor [None]
